FAERS Safety Report 18123787 (Version 5)
Quarter: 2020Q4

REPORT INFORMATION
  Report Type: Report from Study
  Country: US (occurrence: US)
  Receive Date: 20200807
  Receipt Date: 20201111
  Transmission Date: 20210113
  Serious: No
  Sender: FDA-Public Use
  Company Number: NVSC2020US215746

PATIENT
  Age: 56 Year
  Sex: Female

DRUGS (2)
  1. METOPROLOL SUCCINATE. [Suspect]
     Active Substance: METOPROLOL SUCCINATE
     Indication: PRODUCT USED FOR UNKNOWN INDICATION
     Dosage: UNK
     Route: 065
  2. ENTRESTO [Suspect]
     Active Substance: SACUBITRIL\VALSARTAN
     Indication: PRODUCT USED FOR UNKNOWN INDICATION
     Dosage: UNK, BID
     Route: 048
     Dates: start: 201904

REACTIONS (5)
  - Somnolence [Unknown]
  - Blood pressure increased [Unknown]
  - Depression [Unknown]
  - Stress [Unknown]
  - Headache [Unknown]

NARRATIVE: CASE EVENT DATE: 20200729
